FAERS Safety Report 5001304-4 (Version None)
Quarter: 2006Q2

REPORT INFORMATION
  Report Type: 
  Country: None (occurrence: None)
  Receive Date: 20060512
  Receipt Date: 20060510
  Transmission Date: 20061013
  Serious: Yes (Hospitalization)
  Sender: FDA-Public Use
  Company Number: GB-MERCK-0605GBR00049

PATIENT
  Age: 69 Year
  Sex: Female

DRUGS (8)
  1. DECADRON [Suspect]
     Indication: PALLIATIVE CARE
     Route: 048
  2. DICLOFENAC [Suspect]
     Indication: BONE PAIN
     Route: 048
     Dates: end: 20060325
  3. GABAPENTIN [Concomitant]
     Indication: NEURALGIA
     Route: 048
  4. ZOPICLONE [Concomitant]
     Route: 065
  5. AMILORIDE HYDROCHLORIDE AND FUROSEMIDE [Concomitant]
     Route: 048
  6. FLECAINIDE ACETATE [Concomitant]
     Route: 048
  7. CITALOPRAM [Concomitant]
     Route: 048
  8. FENTANYL [Concomitant]
     Indication: PAIN
     Route: 061

REACTIONS (4)
  - ABDOMINAL PAIN [None]
  - GASTRIC ULCER [None]
  - HAEMATEMESIS [None]
  - MELAENA [None]
